FAERS Safety Report 13644297 (Version 1)
Quarter: 2017Q2

REPORT INFORMATION
  Report Type: Spontaneous
  Country: US (occurrence: US)
  Receive Date: 20170612
  Receipt Date: 20170612
  Transmission Date: 20170830
  Serious: No
  Sender: FDA-Public Use
  Company Number: US-ROCHE-1097347

PATIENT
  Sex: Female

DRUGS (8)
  1. KLONOPIN [Suspect]
     Active Substance: CLONAZEPAM
     Indication: PRODUCT USED FOR UNKNOWN INDICATION
     Dosage: 2.75
     Route: 065
  2. METHADONE [Concomitant]
     Active Substance: METHADONE HYDROCHLORIDE
     Indication: PRODUCT USED FOR UNKNOWN INDICATION
  3. KLONOPIN [Suspect]
     Active Substance: CLONAZEPAM
     Route: 065
  4. SEROQUEL [Concomitant]
     Active Substance: QUETIAPINE FUMARATE
     Route: 065
  5. ZYPREXA [Concomitant]
     Active Substance: OLANZAPINE
     Indication: PRODUCT USED FOR UNKNOWN INDICATION
  6. AMBIEN [Concomitant]
     Active Substance: ZOLPIDEM TARTRATE
     Indication: PRODUCT USED FOR UNKNOWN INDICATION
  7. GABAPENTIN. [Concomitant]
     Active Substance: GABAPENTIN
     Indication: PRODUCT USED FOR UNKNOWN INDICATION
  8. SEROQUEL [Concomitant]
     Active Substance: QUETIAPINE FUMARATE
     Indication: PRODUCT USED FOR UNKNOWN INDICATION
     Route: 065

REACTIONS (19)
  - Suicidal ideation [Unknown]
  - Constipation [Unknown]
  - Bruxism [Unknown]
  - Urticaria [Unknown]
  - Pain in extremity [Unknown]
  - Dependence [Unknown]
  - Dry mouth [Unknown]
  - Paraesthesia [Unknown]
  - Dehydration [Unknown]
  - Oral discomfort [Unknown]
  - Rash [Unknown]
  - Ill-defined disorder [Unknown]
  - Insomnia [Unknown]
  - Mental disorder [Unknown]
  - Muscle spasms [Unknown]
  - Onychophagia [Unknown]
  - Proctalgia [Unknown]
  - Dry eye [Unknown]
  - Burning sensation [Unknown]
